FAERS Safety Report 11317990 (Version 3)
Quarter: 2016Q1

REPORT INFORMATION
  Report Type: Spontaneous
  Country: US (occurrence: US)
  Receive Date: 20150728
  Receipt Date: 20160229
  Transmission Date: 20160525
  Serious: Yes (Death)
  Sender: FDA-Public Use
  Company Number: US-CELGENE-USA-2015075179

PATIENT
  Age: 66 Year
  Sex: Male
  Weight: 48.71 kg

DRUGS (12)
  1. POTASSIUM [Concomitant]
     Active Substance: POTASSIUM
     Indication: SUPPLEMENTATION THERAPY
     Route: 048
     Dates: start: 20150625
  2. ZOFRAN [Concomitant]
     Active Substance: ONDANSETRON HYDROCHLORIDE
     Indication: NAUSEA
     Dosage: .5 MILLIGRAM
     Route: 048
     Dates: start: 20150521
  3. COMPAZINE [Concomitant]
     Active Substance: PROCHLORPERAZINE MALEATE
     Indication: NAUSEA
     Dosage: 20 MILLILITER
     Route: 048
     Dates: start: 20150521
  4. ATIVAN [Concomitant]
     Active Substance: LORAZEPAM
     Indication: NAUSEA
     Dosage: 40 MILLIGRAM
     Route: 048
     Dates: start: 20150521
  5. ABRAXANE [Suspect]
     Active Substance: PACLITAXEL
     Indication: PANCREATIC CARCINOMA
     Dosage: 170 MILLIGRAM
     Route: 041
     Dates: start: 20150611, end: 20150618
  6. NYSTATIN. [Concomitant]
     Active Substance: NYSTATIN
     Indication: ORAL CANDIDIASIS
     Dosage: 20 MILLIEQUIVALENTS
     Route: 048
     Dates: start: 20150625
  7. OMEPRAZOLE. [Concomitant]
     Active Substance: OMEPRAZOLE
     Indication: GASTROINTESTINAL DISORDER
     Dosage: 1400 MILLIGRAM
     Route: 065
     Dates: start: 20150611, end: 20150618
  8. ZOFRAN [Concomitant]
     Active Substance: ONDANSETRON HYDROCHLORIDE
     Indication: VOMITING
  9. GEMZAR [Concomitant]
     Active Substance: GEMCITABINE HYDROCHLORIDE
     Indication: PANCREATIC CARCINOMA
     Route: 041
     Dates: start: 20150611, end: 20150618
  10. ATIVAN [Concomitant]
     Active Substance: LORAZEPAM
     Indication: VOMITING
  11. ATIVAN [Concomitant]
     Active Substance: LORAZEPAM
     Indication: ANXIETY
  12. MULTIVITAMINS [Concomitant]
     Active Substance: VITAMINS
     Indication: SUPPLEMENTATION THERAPY
     Dosage: 4 MILLIGRAM
     Route: 065

REACTIONS (1)
  - Pancreatic carcinoma [Fatal]

NARRATIVE: CASE EVENT DATE: 20150716
